FAERS Safety Report 22386410 (Version 1)
Quarter: 2023Q2

REPORT INFORMATION
  Report Type: Report from Study
  Country: US (occurrence: US)
  Receive Date: 20230531
  Receipt Date: 20230531
  Transmission Date: 20230721
  Serious: Yes (Hospitalization)
  Sender: FDA-Public Use
  Company Number: US-ABBVIE-4748977

PATIENT
  Age: 72 Year
  Sex: Female

DRUGS (2)
  1. HUMIRA [Suspect]
     Active Substance: ADALIMUMAB
     Indication: Rheumatoid arthritis
     Dosage: CITRATE FREE  FORM STRENGTH - 40 MG
     Route: 058
     Dates: start: 20230323
  2. HUMIRA [Suspect]
     Active Substance: ADALIMUMAB
     Dosage: CITRATE FREE  FORM STRENGTH - 40 MG
     Route: 058

REACTIONS (6)
  - Haemoglobin decreased [Recovering/Resolving]
  - Blood iron decreased [Recovering/Resolving]
  - Malaise [Unknown]
  - Arthralgia [Not Recovered/Not Resolved]
  - Haemoglobin decreased [Recovering/Resolving]
  - Dehydration [Recovering/Resolving]

NARRATIVE: CASE EVENT DATE: 20230321
